FAERS Safety Report 7580065-9 (Version None)
Quarter: 2011Q2

REPORT INFORMATION
  Report Type: 
  Country: None (occurrence: None)
  Receive Date: 20110629
  Receipt Date: 20110621
  Transmission Date: 20111010
  Serious: Yes (Hospitalization)
  Sender: FDA-Public Use
  Company Number: US-NOVOPROD-330380

PATIENT
  Sex: Female
  Weight: 61.224 kg

DRUGS (5)
  1. GLIMEPIRIDE [Concomitant]
     Indication: DIABETES MELLITUS
     Dosage: 4 MG, BID
  2. METOPROLOL TARTRATE [Concomitant]
     Indication: HYPERTENSION
     Dosage: 50 MG, QD, NIGHT
  3. LEVEMIR [Suspect]
     Indication: DIABETES MELLITUS
     Dosage: 34 U, QD, AT NIGHT
     Route: 058
  4. AMLODIPINE [Concomitant]
     Indication: HYPERTENSION
  5. DIOVAN [Concomitant]
     Indication: HYPERTENSION
     Dosage: 160 MG, QD, MORNING

REACTIONS (1)
  - CEREBROVASCULAR ACCIDENT [None]
